FAERS Safety Report 4884812-6 (Version None)
Quarter: 2005Q4

REPORT INFORMATION
  Report Type: 
  Country: None (occurrence: None)
  Receive Date: 20051201
  Receipt Date: 20050919
  Transmission Date: 20060501
  Serious: No
  Sender: FDA-Public Use
  Company Number: 2005PV002273

PATIENT
  Age: 72 Year
  Sex: Male
  Weight: 88.4514 kg

DRUGS (5)
  1. BYETTA [Suspect]
     Indication: DIABETES MELLITUS NON-INSULIN-DEPENDENT
     Dosage: 10 MCG; BID; SC; 5 MCG; BID; SC
     Route: 058
     Dates: start: 20050801
  2. HUMULIN R [Concomitant]
  3. HUMULIN N [Concomitant]
  4. HUMALOG [Concomitant]
  5. GLUCOPHAGE [Concomitant]

REACTIONS (2)
  - HYPERTRICHOSIS [None]
  - WEIGHT DECREASED [None]
